FAERS Safety Report 11398088 (Version 2)
Quarter: 2015Q3

REPORT INFORMATION
  Report Type: Spontaneous
  Country: CR (occurrence: CR)
  Receive Date: 20150820
  Receipt Date: 20150828
  Transmission Date: 20151125
  Serious: Yes (Disabling, Other)
  Sender: FDA-Public Use
  Company Number: CR-AMGEN-CRISP2015083753

PATIENT
  Age: 40 Year
  Sex: Female

DRUGS (6)
  1. TENOXICAM [Concomitant]
     Active Substance: TENOXICAM
     Dosage: 20 MG, DAILY
  2. ENBREL [Suspect]
     Active Substance: ETANERCEPT
     Indication: RHEUMATOID ARTHRITIS
     Dosage: 50 MG, WEEKLY
     Route: 058
     Dates: start: 201506, end: 201507
  3. SULFASALAZINA [Concomitant]
     Dosage: 1 G, 3X/DAY
  4. METOTREXATE [Concomitant]
     Active Substance: METHOTREXATE SODIUM
     Dosage: 15 MG, WEEKLY
  5. PREDNISOLONA                       /00016201/ [Concomitant]
     Dosage: 10 MG, DAILY
  6. LEFLUNOMIDA [Concomitant]
     Active Substance: LEFLUNOMIDE
     Dosage: 20 MG, DAILY

REACTIONS (1)
  - Ulcerative keratitis [Not Recovered/Not Resolved]

NARRATIVE: CASE EVENT DATE: 201506
